FAERS Safety Report 7508857-2 (Version None)
Quarter: 2011Q2

REPORT INFORMATION
  Report Type: 
  Country: None (occurrence: None)
  Receive Date: 20110527
  Receipt Date: 20110516
  Transmission Date: 20111010
  Serious: Yes (Hospitalization)
  Sender: FDA-Public Use
  Company Number: PHHY2011US41978

PATIENT
  Sex: Male
  Weight: 60.47 kg

DRUGS (2)
  1. ANTIBIOTICS [Concomitant]
  2. EXJADE [Suspect]
     Indication: IRON OVERLOAD
     Dosage: 1000 MG, DAILY
     Route: 048
     Dates: start: 20091016

REACTIONS (2)
  - PYREXIA [None]
  - DEHYDRATION [None]
